FAERS Safety Report 5218801-9 (Version None)
Quarter: 2007Q1

REPORT INFORMATION
  Report Type: 
  Country: None (occurrence: None)
  Receive Date: 20070123
  Receipt Date: 20070117
  Transmission Date: 20070707
  Serious: Yes (Death, Hospitalization)
  Sender: FDA-Public Use
  Company Number: 163-20785-06081290

PATIENT
  Age: 67 Year
  Sex: Male

DRUGS (12)
  1. REVLIMID [Suspect]
     Indication: MULTIPLE MYELOMA
     Dosage: 10 MG, 1 IN 1 D, ORAL; SEE IMAGE
     Route: 048
     Dates: start: 20051001, end: 20051101
  2. REVLIMID [Suspect]
     Indication: MULTIPLE MYELOMA
     Dosage: 10 MG, 1 IN 1 D, ORAL; SEE IMAGE
     Route: 048
     Dates: start: 20051101, end: 20060101
  3. REVLIMID [Suspect]
     Indication: MULTIPLE MYELOMA
     Dosage: 10 MG, 1 IN 1 D, ORAL; SEE IMAGE
     Route: 048
     Dates: start: 20060831, end: 20061201
  4. THALOMID [Suspect]
     Indication: MULTIPLE MYELOMA
     Dosage: 100 MG, 1 IN 1 D, ORAL; SEE IMAGE
     Route: 048
     Dates: start: 20051001, end: 20051101
  5. THALOMID [Suspect]
     Indication: MULTIPLE MYELOMA
     Dosage: 100 MG, 1 IN 1 D, ORAL; SEE IMAGE
     Route: 048
     Dates: start: 20051101, end: 20060101
  6. THALOMID [Suspect]
     Indication: MULTIPLE MYELOMA
     Dosage: 100 MG, 1 IN 1 D, ORAL; SEE IMAGE
     Route: 048
     Dates: start: 20060201, end: 20060301
  7. VELCADE [Suspect]
     Dates: start: 20051201, end: 20060901
  8. VELCADE [Suspect]
     Dates: start: 20061201, end: 20061201
  9. DECADRON [Concomitant]
  10. ALLOPURINOL [Concomitant]
  11. PREVACID [Concomitant]
  12. AREDIA [Concomitant]

REACTIONS (7)
  - DISEASE PROGRESSION [None]
  - GENERAL PHYSICAL HEALTH DETERIORATION [None]
  - HAEMOGLOBIN DECREASED [None]
  - MULTIPLE MYELOMA [None]
  - PLATELET COUNT NORMAL [None]
  - STEM CELL TRANSPLANT [None]
  - WHITE BLOOD CELL COUNT DECREASED [None]
